FAERS Safety Report 6625164-0 (Version None)
Quarter: 2010Q1

REPORT INFORMATION
  Report Type: 
  Country: None (occurrence: None)
  Receive Date: 20100310
  Receipt Date: 20090902
  Transmission Date: 20100710
  Serious: No
  Sender: FDA-Public Use
  Company Number: US-BIOGENIDEC-2009BI028432

PATIENT
  Age: 59 Year
  Sex: Female

DRUGS (1)
  1. AVONEX [Suspect]
     Indication: MULTIPLE SCLEROSIS
     Route: 030
     Dates: start: 20081204, end: 20090701

REACTIONS (4)
  - ARTHROPOD INFESTATION [None]
  - BALANCE DISORDER [None]
  - DYSKINESIA [None]
  - MEMORY IMPAIRMENT [None]
